FAERS Safety Report 18180287 (Version 1)
Quarter: 2020Q3

REPORT INFORMATION
  Report Type: Spontaneous
  Country: CA (occurrence: CA)
  Receive Date: 20200821
  Receipt Date: 20200821
  Transmission Date: 20201103
  Serious: Yes (Life-Threatening, Hospitalization)
  Sender: FDA-Public Use
  Company Number: CA-TEVA-2020-CA-1815623

PATIENT
  Age: 1 Year
  Sex: Male
  Weight: 11 kg

DRUGS (14)
  1. CYCLOPHOSPHAMIDE. [Suspect]
     Active Substance: CYCLOPHOSPHAMIDE
     Indication: CLEAR CELL SARCOMA OF THE KIDNEY
     Route: 042
  2. ACETAMINOPHEN. [Concomitant]
     Active Substance: ACETAMINOPHEN
  3. ALTEPLASE. [Concomitant]
     Active Substance: ALTEPLASE
  4. CHLORPROMAZINE. [Concomitant]
     Active Substance: CHLORPROMAZINE
  5. DIMENHYDRINATE. [Concomitant]
     Active Substance: DIMENHYDRINATE
  6. MELATONIN [Concomitant]
     Active Substance: MELATONIN
  7. CALCIUM [Concomitant]
     Active Substance: CALCIUM
  8. HEPARIN CALCIUM [Concomitant]
     Active Substance: HEPARIN CALCIUM
  9. ONDANSETRON [Concomitant]
     Active Substance: ONDANSETRON
  10. DOXORUBICIN HYDROCHLORIDE INJECTION [Suspect]
     Active Substance: DOXORUBICIN HYDROCHLORIDE
     Indication: CLEAR CELL SARCOMA OF THE KIDNEY
     Dosage: 19 MILLIGRAM DAILY;
     Route: 042
  11. CLONIDINE. [Concomitant]
     Active Substance: CLONIDINE
  12. MORPHINE [Concomitant]
     Active Substance: MORPHINE
  13. VINCRISTINE SULFATE. [Suspect]
     Active Substance: VINCRISTINE SULFATE
     Indication: CLEAR CELL SARCOMA OF THE KIDNEY
     Route: 042
  14. PENTAMIDINE ISETHIONATE INJ 300MG/VIAL BP [Concomitant]

REACTIONS (2)
  - Pancytopenia [Unknown]
  - Febrile neutropenia [Unknown]
